FAERS Safety Report 7118389-1 (Version None)
Quarter: 2010Q4

REPORT INFORMATION
  Report Type: 
  Country: None (occurrence: None)
  Receive Date: 20101123
  Receipt Date: 20101115
  Transmission Date: 20110411
  Serious: Yes (Hospitalization)
  Sender: FDA-Public Use
  Company Number: US-US-EMD SERONO, INC.-232344J09USA

PATIENT
  Sex: Male

DRUGS (6)
  1. REBIF [Suspect]
     Indication: MULTIPLE SCLEROSIS
     Route: 058
     Dates: start: 20090721
  2. OXYBUTYNIN [Concomitant]
  3. GABAPENTIN [Concomitant]
  4. LACTULOSE [Concomitant]
  5. STOOL SOFTENER [Concomitant]
  6. ALEVE (CAPLET) [Concomitant]
     Indication: HEADACHE

REACTIONS (3)
  - HYPOAESTHESIA [None]
  - SEPSIS [None]
  - URINARY TRACT INFECTION [None]
